FAERS Safety Report 23546901 (Version 1)
Quarter: 2024Q1

REPORT INFORMATION
  Report Type: Spontaneous
  Country: CN (occurrence: CN)
  Receive Date: 20240221
  Receipt Date: 20240221
  Transmission Date: 20240410
  Serious: Yes (Hospitalization)
  Sender: FDA-Public Use
  Company Number: CN-NOVOPROD-1176494

PATIENT
  Age: 35 Year
  Sex: Male
  Weight: 55 kg

DRUGS (7)
  1. INSULIN ASPART [Suspect]
     Active Substance: INSULIN ASPART
     Indication: Diabetes mellitus
     Dosage: UNK
     Route: 058
  2. NOVORAPID [Suspect]
     Active Substance: INSULIN ASPART
     Indication: Diabetes mellitus
     Dosage: UNK
     Route: 058
  3. PIOGLITAZONE [Concomitant]
     Active Substance: PIOGLITAZONE
     Dosage: UNK
  4. ACARBOSE [Concomitant]
     Active Substance: ACARBOSE
     Dosage: UNK
  5. HUMALOG MIX50/50 [Concomitant]
     Active Substance: INSULIN LISPRO
     Dosage: UNK
  6. METFORMIN [Concomitant]
     Active Substance: METFORMIN HYDROCHLORIDE
     Dosage: UNK
  7. VOGLIBOSE [Concomitant]
     Active Substance: VOGLIBOSE
     Dosage: UNK

REACTIONS (4)
  - Insulin autoimmune syndrome [Unknown]
  - Hypoglycaemia [Unknown]
  - Injection site vesicles [Unknown]
  - Injection site pruritus [Unknown]
